FAERS Safety Report 9174224 (Version 2)
Quarter: 2013Q1

REPORT INFORMATION
  Report Type: Spontaneous
  Country: CA (occurrence: CA)
  Receive Date: 20130320
  Receipt Date: 20130322
  Transmission Date: 20140127
  Serious: Yes (Other)
  Sender: FDA-Public Use
  Company Number: CA-PFIZER INC-2013088831

PATIENT
  Age: 55 Year
  Sex: Female
  Weight: 74.4 kg

DRUGS (1)
  1. PANTOLOC [Suspect]
     Indication: GASTRITIS
     Dosage: 40 MG, 2X/DAY
     Dates: start: 20120427, end: 20120524

REACTIONS (5)
  - Blood alkaline phosphatase increased [Recovered/Resolved]
  - Chromaturia [Recovered/Resolved]
  - Abdominal pain [Recovered/Resolved]
  - Alanine aminotransferase increased [Recovered/Resolved]
  - Aspartate aminotransferase increased [Recovered/Resolved]
